FAERS Safety Report 16571808 (Version 1)
Quarter: 2019Q3

REPORT INFORMATION
  Report Type: Spontaneous
  Country: US (occurrence: US)
  Receive Date: 20190714
  Receipt Date: 20190714
  Transmission Date: 20191004
  Serious: No
  Sender: FDA-Public Use
  Company Number: None

PATIENT
  Age: 17 Year
  Sex: Female
  Weight: 40.95 kg

DRUGS (8)
  1. O-TROPIN [Concomitant]
  2. DIM COMPLEX [Concomitant]
  3. LOOMIS ENZYMES VSCLR [Concomitant]
  4. LYMESTAT [Suspect]
     Active Substance: HOMEOPATHICS
     Indication: LYME DISEASE
  5. PANCREATROPHIN [Concomitant]
  6. PROSOL [Concomitant]
     Active Substance: ALANINE\ARGININE\ASPARTIC ACID\GLUTAMIC ACID\GLYCINE\HISTIDINE\ISOLEUCINE\LEUCINE\LYSINE ACETATE\METHIONINE\PHENYLALANINE\PROLINE\SERINE\THREONINE\TRYPTOPHAN\TYROSINE\VALINE
  7. LIVAPLEX [Concomitant]
  8. LICORICE ROOT, [Concomitant]

REACTIONS (7)
  - Dyspepsia [None]
  - Blood pressure decreased [None]
  - Product odour abnormal [None]
  - Nausea [None]
  - Migraine [None]
  - Vomiting [None]
  - Biliary colic [None]

NARRATIVE: CASE EVENT DATE: 20190709
